FAERS Safety Report 6095686-2 (Version None)
Quarter: 2009Q1

REPORT INFORMATION
  Report Type: 
  Country: None (occurrence: None)
  Receive Date: 20090227
  Receipt Date: 20080522
  Transmission Date: 20090719
  Serious: Yes (Other)
  Sender: FDA-Public Use
  Company Number: A0729232A

PATIENT
  Age: 29 Year
  Sex: Female

DRUGS (3)
  1. LAMICTAL [Suspect]
     Indication: BIPOLAR DISORDER
     Dosage: 300MG PER DAY
     Route: 048
     Dates: start: 20070501
  2. TETRACYCLINE [Concomitant]
  3. BENADRYL [Concomitant]

REACTIONS (5)
  - APHASIA [None]
  - HYPOKINESIA [None]
  - RASH [None]
  - RASH PUSTULAR [None]
  - RASH VESICULAR [None]
